FAERS Safety Report 4558108-6 (Version None)
Quarter: 2005Q1

REPORT INFORMATION
  Report Type: 
  Country: None (occurrence: None)
  Receive Date: 20050121
  Receipt Date: 20041122
  Transmission Date: 20050727
  Serious: Yes (Other)
  Sender: FDA-Public Use
  Company Number: US-BRISTOL-MYERS SQUIBB COMPANY-12777587

PATIENT
  Age: 57 Year
  Sex: Male
  Weight: 84 kg

DRUGS (3)
  1. SERZONE [Suspect]
     Indication: DEPRESSION
     Dosage: DURATION OF THERAPY:  SEVERAL YEARS
  2. FLUOXETINE HCL [Concomitant]
     Indication: DEPRESSION
  3. SERTRALINE HCL [Concomitant]
     Indication: DEPRESSION

REACTIONS (4)
  - CHROMATURIA [None]
  - HEPATOCELLULAR DAMAGE [None]
  - LIVER FUNCTION TEST ABNORMAL [None]
  - SUICIDE ATTEMPT [None]
